FAERS Safety Report 10406180 (Version 4)
Quarter: 2015Q2

REPORT INFORMATION
  Report Type: Spontaneous
  Country: US (occurrence: US)
  Receive Date: 20140825
  Receipt Date: 20150626
  Transmission Date: 20150821
  Serious: Yes (Hospitalization)
  Sender: FDA-Public Use
  Company Number: US-BAYER-2014-126889

PATIENT
  Age: 24 Year
  Sex: Female
  Weight: 87 kg

DRUGS (7)
  1. MIRENA [Suspect]
     Active Substance: LEVONORGESTREL
     Indication: CONTRACEPTION
     Dosage: 20 MCG/24HR, CONT
     Route: 015
     Dates: start: 20080717, end: 20110825
  2. MOTRIN [Concomitant]
     Active Substance: IBUPROFEN
     Indication: MUSCLE SPASMS
  3. TYLENOL WITH CODEINE [Concomitant]
     Active Substance: ACETAMINOPHEN\CODEINE PHOSPHATE
  4. MOTRIN [Concomitant]
     Active Substance: IBUPROFEN
     Indication: PAIN
  5. PREDNISONE. [Concomitant]
     Active Substance: PREDNISONE
     Dosage: UNK
     Dates: start: 20110601
  6. VALIUM [Concomitant]
     Active Substance: DIAZEPAM
     Dosage: UNK
     Dates: start: 201108
  7. CODEINE [Concomitant]
     Active Substance: CODEINE
     Indication: PAIN

REACTIONS (11)
  - Drug ineffective [None]
  - Emotional distress [None]
  - Infertility female [None]
  - Injury [None]
  - Device issue [None]
  - Libido decreased [None]
  - Anxiety [None]
  - Uterine perforation [None]
  - Ectopic pregnancy with contraceptive device [None]
  - Pain [None]
  - Psychological trauma [None]

NARRATIVE: CASE EVENT DATE: 2011
